FAERS Safety Report 10792128 (Version 5)
Quarter: 2015Q1

REPORT INFORMATION
  Report Type: Spontaneous
  Country: US (occurrence: US)
  Receive Date: 20150213
  Receipt Date: 20150313
  Transmission Date: 20150721
  Serious: Yes (Life-Threatening, Disabling)
  Sender: FDA-Public Use
  Company Number: US-JNJFOC-20150120032

PATIENT
  Age: 91 Year
  Sex: Female
  Weight: 78.93 kg

DRUGS (9)
  1. XARELTO [Suspect]
     Active Substance: RIVAROXABAN
     Indication: PULMONARY EMBOLISM
     Route: 048
     Dates: start: 20140918
  2. GLEEVEC [Concomitant]
     Active Substance: IMATINIB MESYLATE
     Route: 065
     Dates: start: 2013
  3. XARELTO [Suspect]
     Active Substance: RIVAROXABAN
     Indication: PULMONARY EMBOLISM
     Route: 048
  4. ULTRAM [Concomitant]
     Active Substance: TRAMADOL HYDROCHLORIDE
     Route: 065
     Dates: start: 2013
  5. IRON [Concomitant]
     Active Substance: IRON
     Route: 065
     Dates: start: 2013
  6. LASIX [Concomitant]
     Active Substance: FUROSEMIDE
     Route: 065
     Dates: start: 2013
  7. PRILOSEC [Concomitant]
     Active Substance: OMEPRAZOLE MAGNESIUM
     Route: 065
     Dates: start: 2013
  8. NORVASC [Concomitant]
     Active Substance: AMLODIPINE BESYLATE
     Route: 065
     Dates: start: 2013
  9. LOVASTATIN. [Concomitant]
     Active Substance: LOVASTATIN
     Route: 065
     Dates: start: 2013

REACTIONS (2)
  - Cerebrovascular accident [Unknown]
  - Gastrointestinal haemorrhage [Recovered/Resolved]

NARRATIVE: CASE EVENT DATE: 20140928
